FAERS Safety Report 13104004 (Version 1)
Quarter: 2017Q1

REPORT INFORMATION
  Report Type: Spontaneous
  Country: FR (occurrence: FR)
  Receive Date: 20170111
  Receipt Date: 20170111
  Transmission Date: 20170428
  Serious: Yes (Hospitalization)
  Sender: FDA-Public Use
  Company Number: FR-ABBVIE-17K-056-1830801-00

PATIENT
  Age: 49 Year
  Sex: Female

DRUGS (3)
  1. VALERATE DIFLUCORTOLONE [Concomitant]
     Indication: ECZEMA
     Dates: start: 20161207
  2. HUMIRA [Suspect]
     Active Substance: ADALIMUMAB
     Indication: CROHN^S DISEASE
     Route: 058
     Dates: start: 20161108, end: 20161205
  3. IMUREL [Suspect]
     Active Substance: AZATHIOPRINE SODIUM
     Indication: CROHN^S DISEASE
     Route: 048
     Dates: start: 20161108, end: 20161212

REACTIONS (3)
  - Erythema nodosum [Recovering/Resolving]
  - Joint swelling [Unknown]
  - Pyrexia [Recovered/Resolved]

NARRATIVE: CASE EVENT DATE: 2016
